FAERS Safety Report 8288906-7 (Version None)
Quarter: 2012Q2

REPORT INFORMATION
  Report Type: 
  Country: None (occurrence: None)
  Receive Date: 20120417
  Receipt Date: 20120412
  Transmission Date: 20120825
  Serious: Yes (Other)
  Sender: FDA-Public Use
  Company Number: US-TEVA-332973USA

PATIENT
  Sex: Female

DRUGS (2)
  1. ACTIQ [Suspect]
     Indication: BACK PAIN
     Route: 002
  2. ACTIQ [Suspect]
     Indication: NECK PAIN

REACTIONS (7)
  - NEOPLASM MALIGNANT [None]
  - DYSPNOEA [None]
  - BLOOD URINE PRESENT [None]
  - NASOPHARYNGITIS [None]
  - RENAL MASS [None]
  - DRY MOUTH [None]
  - OFF LABEL USE [None]
